FAERS Safety Report 25492776 (Version 2)
Quarter: 2025Q3

REPORT INFORMATION
  Report Type: Spontaneous
  Country: JP (occurrence: JP)
  Receive Date: 20250630
  Receipt Date: 20250724
  Transmission Date: 20251020
  Serious: Yes (Hospitalization, Other)
  Sender: BOEHRINGER INGELHEIM
  Company Number: JP-NBI-2025-BI-079738

PATIENT
  Age: 69 Year
  Sex: Female

DRUGS (1)
  1. OFEV [Suspect]
     Active Substance: NINTEDANIB
     Indication: Product used for unknown indication

REACTIONS (2)
  - Cholecystitis [Not Recovered/Not Resolved]
  - Portal vein thrombosis [Not Recovered/Not Resolved]
